FAERS Safety Report 17300189 (Version 1)
Quarter: 2020Q1

REPORT INFORMATION
  Report Type: Spontaneous
  Country: US (occurrence: US)
  Receive Date: 20200122
  Receipt Date: 20200122
  Transmission Date: 20200409
  Serious: No
  Sender: FDA-Public Use
  Company Number: US-ALLERGAN-1915238US

PATIENT
  Age: 76 Year
  Sex: Female

DRUGS (5)
  1. RESTASIS [Suspect]
     Active Substance: CYCLOSPORINE
     Dosage: 2 GTT
     Route: 047
     Dates: start: 201903
  2. WELLBUTRIN [Concomitant]
     Active Substance: BUPROPION HYDROCHLORIDE
     Dosage: UNK
     Route: 048
  3. ALLERGY MEDS [Concomitant]
     Indication: HYPERSENSITIVITY
     Dosage: UNK
  4. RESTASIS [Suspect]
     Active Substance: CYCLOSPORINE
     Indication: DRY EYE
     Dosage: 2 GTT
     Route: 047
     Dates: start: 201903
  5. VITAMINS NOS [Concomitant]
     Active Substance: VITAMINS
     Dosage: UNK
     Route: 048

REACTIONS (5)
  - Product container issue [Unknown]
  - Incorrect dose administered by product [Unknown]
  - Product administration error [Unknown]
  - Product dropper issue [Unknown]
  - Accidental exposure to product [Unknown]
